FAERS Safety Report 18145946 (Version 1)
Quarter: 2020Q3

REPORT INFORMATION
  Report Type: Spontaneous
  Country: US (occurrence: US)
  Receive Date: 20200813
  Receipt Date: 20200813
  Transmission Date: 20201103
  Serious: No
  Sender: FDA-Public Use
  Company Number: US-HTU-2020US020587

PATIENT
  Sex: Female

DRUGS (3)
  1. VALCHLOR [Suspect]
     Active Substance: MECHLORETHAMINE
     Dosage: UNK, 3/WEEK
     Route: 061
     Dates: start: 20200501
  2. VALCHLOR [Suspect]
     Active Substance: MECHLORETHAMINE
     Indication: CUTANEOUS T-CELL LYMPHOMA
     Dosage: THIN FILM, QD
     Route: 061
     Dates: start: 20200328, end: 20200413
  3. CLINDAMYCIN HYDROCHLORIDE. [Concomitant]
     Active Substance: CLINDAMYCIN HYDROCHLORIDE

REACTIONS (6)
  - Product administration error [Unknown]
  - Application site vesicles [Unknown]
  - Application site pain [Unknown]
  - Sleep disorder due to a general medical condition [Unknown]
  - Application site erythema [Unknown]
  - Application site pruritus [Unknown]
